FAERS Safety Report 4854022-7 (Version None)
Quarter: 2005Q4

REPORT INFORMATION
  Report Type: 
  Country: None (occurrence: None)
  Receive Date: 20051213
  Receipt Date: 20051128
  Transmission Date: 20060501
  Serious: Yes (Hospitalization)
  Sender: FDA-Public Use
  Company Number: 2005S1009949

PATIENT
  Age: 84 Year
  Sex: Female
  Weight: 42.6381 kg

DRUGS (2)
  1. FENTANYL TRANSDERMAL SYSTEM [Suspect]
     Indication: BACK PAIN
     Dosage: 50 MCG/HR; TDER
     Route: 062
  2. FENTANYL TRANSDERMAL SYSTEM [Suspect]
     Indication: OSTEOPOROSIS
     Dosage: 50 MCG/HR; TDER
     Route: 062

REACTIONS (10)
  - ABDOMINAL PAIN UPPER [None]
  - DRUG EFFECT INCREASED [None]
  - FALL [None]
  - FATIGUE [None]
  - GALLBLADDER OPERATION [None]
  - INCORRECT DOSE ADMINISTERED [None]
  - LETHARGY [None]
  - PAIN [None]
  - PNEUMONIA ASPIRATION [None]
  - SOMNOLENCE [None]
